FAERS Safety Report 6649970-1 (Version None)
Quarter: 2010Q1

REPORT INFORMATION
  Report Type: 
  Country: None (occurrence: None)
  Receive Date: 20100324
  Receipt Date: 20100324
  Transmission Date: 20100710
  Serious: Yes (Other)
  Sender: FDA-Public Use
  Company Number: None

PATIENT
  Age: 41 Year
  Sex: Female

DRUGS (1)
  1. TOPAMAX [Suspect]
     Indication: BIPOLAR I DISORDER
     Dosage: 20MG TID P.O
     Route: 048
     Dates: start: 20091201

REACTIONS (1)
  - RASH MACULO-PAPULAR [None]
